FAERS Safety Report 8180756-5 (Version None)
Quarter: 2012Q1

REPORT INFORMATION
  Report Type: 
  Country: None (occurrence: None)
  Receive Date: 20120302
  Receipt Date: 20120228
  Transmission Date: 20120608
  Serious: Yes (Life-Threatening)
  Sender: FDA-Public Use
  Company Number: US-JNJFOC-20120300426

PATIENT
  Age: 10 Year
  Sex: Female

DRUGS (9)
  1. MULTI-VITAMINS [Concomitant]
     Indication: PRODUCT USED FOR UNKNOWN INDICATION
     Route: 065
  2. METHYLPREDNISOLONE [Suspect]
     Indication: HEREDITARY ANGIOEDEMA
     Route: 042
  3. DIPHENHYDRAMINE HCL [Suspect]
     Indication: HEREDITARY ANGIOEDEMA
     Route: 042
  4. EPINEPHRINE [Suspect]
     Indication: HEREDITARY ANGIOEDEMA
     Dosage: 10:1000 0.3 CC
     Route: 030
  5. ALL OTHER THERAPEUTIC PRODUCTS [Concomitant]
     Indication: PROPHYLAXIS
     Dosage: 1000 UNITS EVERY 3 TO 4 DAYS
     Route: 065
  6. DIPHENHYDRAMINE HCL [Suspect]
     Route: 065
  7. DIPHENHYDRAMINE HCL [Suspect]
     Indication: SEASONAL ALLERGY
     Route: 065
  8. DIPHENHYDRAMINE HCL [Suspect]
     Route: 042
  9. ANTIHISTAMINES [Concomitant]
     Indication: PRODUCT USED FOR UNKNOWN INDICATION
     Route: 065

REACTIONS (1)
  - DRUG INEFFECTIVE FOR UNAPPROVED INDICATION [None]
